FAERS Safety Report 24062483 (Version 4)
Quarter: 2024Q4

REPORT INFORMATION
  Report Type: Report from Study
  Country: BR (occurrence: BR)
  Receive Date: 20240708
  Receipt Date: 20241205
  Transmission Date: 20250115
  Serious: Yes (Other)
  Sender: ELI LILLY AND COMPANY
  Company Number: BR-Merck Healthcare KGaA-2024035108

PATIENT
  Age: 67 Year
  Sex: Male

DRUGS (4)
  1. CETUXIMAB [Suspect]
     Active Substance: CETUXIMAB
     Indication: Tonsil cancer metastatic
     Dosage: UNK, OTHER, ONCE EVERY 15 DAYS. 20 AND 20MG IS CORRESPONDENT TO THE TOTAL OF ERBITUX
     Route: 042
     Dates: start: 20240613
  2. CISPLATIN [Suspect]
     Active Substance: CISPLATIN
     Indication: Tonsil cancer metastatic
     Dosage: UNK UNK, UNKNOWN
     Route: 065
  3. OXALIPLATIN [Suspect]
     Active Substance: OXALIPLATIN
     Indication: Tonsil cancer metastatic
     Dosage: UNK UNK, 2/M
     Route: 065
  4. DEXAMETHASONE [Concomitant]
     Active Substance: DEXAMETHASONE
     Indication: Product used for unknown indication

REACTIONS (4)
  - Platelet count decreased [Recovered/Resolved]
  - Immunodeficiency [Recovered/Resolved]
  - White blood cell count decreased [Recovered/Resolved]
  - Off label use [Unknown]

NARRATIVE: CASE EVENT DATE: 20240723
